FAERS Safety Report 4940157-7 (Version None)
Quarter: 2006Q1

REPORT INFORMATION
  Report Type: 
  Country: None (occurrence: None)
  Receive Date: 20060310
  Receipt Date: 20060302
  Transmission Date: 20060701
  Serious: Yes (Other)
  Sender: FDA-Public Use
  Company Number: 2006SE01295

PATIENT
  Age: 22 Year
  Sex: Female

DRUGS (4)
  1. LIDOCAINE AND EPINEPHRINE [Suspect]
     Indication: CAESAREAN SECTION
     Route: 008
     Dates: start: 20060124, end: 20060124
  2. FLAGYL [Suspect]
     Indication: CAESAREAN SECTION
     Dates: start: 20060124, end: 20060124
  3. PENTREXYL [Suspect]
     Indication: CAESAREAN SECTION
     Dates: start: 20060124, end: 20060124
  4. FENTANYL CITRATE [Suspect]
     Indication: CAESAREAN SECTION
     Dates: start: 20060124, end: 20060124

REACTIONS (5)
  - CHEST PAIN [None]
  - DYSPNOEA [None]
  - HYPOTENSION [None]
  - OXYGEN SATURATION DECREASED [None]
  - TACHYCARDIA [None]
